FAERS Safety Report 6920096-2 (Version None)
Quarter: 2010Q3

REPORT INFORMATION
  Report Type: 
  Country: None (occurrence: None)
  Receive Date: 20100811
  Receipt Date: 20100802
  Transmission Date: 20110219
  Serious: Yes (Life-Threatening, Hospitalization)
  Sender: FDA-Public Use
  Company Number: FR-GENZYME-THYM-1001524

PATIENT
  Sex: Female

DRUGS (26)
  1. THYMOGLOBULIN [Suspect]
     Indication: ACUTE GRAFT VERSUS HOST DISEASE
     Dosage: 125 MG, QD
     Route: 042
     Dates: start: 20100209, end: 20100212
  2. CYCLOSPORINE [Concomitant]
     Indication: GRAFT VERSUS HOST DISEASE
     Dosage: UNK
     Dates: start: 20100311
  3. BACTRIM [Concomitant]
     Indication: ANTIBIOTIC PROPHYLAXIS
     Dosage: UNK
     Dates: start: 20100315, end: 20100426
  4. AMOXICILLIN [Concomitant]
     Indication: ANTIBIOTIC PROPHYLAXIS
     Dosage: UNK
  5. ATARAX [Concomitant]
     Indication: PROPHYLAXIS
     Dosage: UNK
  6. ARIXTRA [Concomitant]
     Indication: THROMBOSIS PROPHYLAXIS
     Dosage: UNK
  7. LUTENYL [Concomitant]
     Indication: PROPHYLAXIS
     Dosage: UNK
     Dates: start: 20100401, end: 20100608
  8. REVLIMID [Concomitant]
     Indication: LEUKAEMIA PLASMACYTIC
     Dosage: UNK
     Dates: start: 20100406, end: 20100420
  9. VELCADE [Concomitant]
     Indication: LEUKAEMIA PLASMACYTIC
     Dosage: UNK
     Dates: start: 20100419, end: 20100419
  10. VELCADE [Concomitant]
     Dosage: UNK
     Dates: start: 20100426, end: 20100426
  11. OMEPRAZOLE [Concomitant]
     Indication: PROPHYLAXIS AGAINST GASTROINTESTINAL ULCER
     Dosage: UNK
     Dates: start: 20100406, end: 20100608
  12. XANAX [Concomitant]
     Indication: PROPHYLAXIS
     Dosage: UNK
     Dates: start: 20100406, end: 20100605
  13. ARANESP [Concomitant]
     Indication: ANAEMIA PROPHYLAXIS
     Dosage: UNK
     Dates: start: 20100426, end: 20100518
  14. WELLVONE [Concomitant]
     Indication: PROPHYLAXIS
     Dosage: UNK
     Dates: start: 20100426, end: 20100608
  15. ZELITREX [Concomitant]
     Indication: ANTIVIRAL PROPHYLAXIS
     Dosage: UNK
     Dates: start: 20100401, end: 20100426
  16. ZELITREX [Concomitant]
     Dosage: UNK
     Dates: start: 20100518, end: 20100608
  17. DEXAMETHASONE [Concomitant]
     Indication: PRODUCT USED FOR UNKNOWN INDICATION
     Dosage: UNK
     Dates: start: 20100419, end: 20100420
  18. DEXAMETHASONE [Concomitant]
     Dosage: UNK
     Dates: start: 20100426, end: 20100427
  19. CORTANCYL [Concomitant]
     Indication: PRODUCT USED FOR UNKNOWN INDICATION
     Dosage: UNK
     Dates: start: 20100421, end: 20100425
  20. CORTANCYL [Concomitant]
     Dosage: UNK
     Dates: start: 20100428, end: 20100504
  21. CORTANCYL [Concomitant]
     Dosage: UNK
     Dates: start: 20100505, end: 20100517
  22. CORTANCYL [Concomitant]
     Dosage: UNK
     Dates: start: 20100518, end: 20100529
  23. PLASMA [Concomitant]
     Indication: PRODUCT USED FOR UNKNOWN INDICATION
     Dosage: UNK
     Dates: start: 20100208, end: 20100505
  24. RED BLOOD CELLS [Concomitant]
     Indication: PRODUCT USED FOR UNKNOWN INDICATION
     Dosage: UNK
     Dates: start: 20100208, end: 20100505
  25. PLATELETS [Concomitant]
     Indication: PRODUCT USED FOR UNKNOWN INDICATION
     Dosage: UNK
     Dates: start: 20100208, end: 20100505
  26. ALBUMIN (HUMAN) [Concomitant]
     Indication: PRODUCT USED FOR UNKNOWN INDICATION
     Dosage: UNK
     Dates: start: 20100208, end: 20100505

REACTIONS (23)
  - ABDOMINAL PAIN [None]
  - ADENOVIRUS INFECTION [None]
  - ARTHRALGIA [None]
  - ASTHENIA [None]
  - BACK PAIN [None]
  - BACTERIAL SEPSIS [None]
  - CONSTIPATION [None]
  - COUGH [None]
  - CYTOMEGALOVIRUS INFECTION [None]
  - DIARRHOEA [None]
  - DYSURIA [None]
  - ENTEROVIRUS INFECTION [None]
  - ESCHERICHIA URINARY TRACT INFECTION [None]
  - FALL [None]
  - GENERALISED OEDEMA [None]
  - HAEMORRHOIDS [None]
  - LEUKAEMIA PLASMACYTIC [None]
  - NEURALGIA [None]
  - OEDEMA PERIPHERAL [None]
  - OLIGURIA [None]
  - PYREXIA [None]
  - SCOTOMA [None]
  - THROMBOCYTOPENIA [None]
